FAERS Safety Report 6591489-0 (Version None)
Quarter: 2010Q1

REPORT INFORMATION
  Report Type: 
  Country: None (occurrence: None)
  Receive Date: 20100219
  Receipt Date: 20100211
  Transmission Date: 20100710
  Serious: Yes (Other)
  Sender: FDA-Public Use
  Company Number: EC-ABBOTT-10P-047-0626039-00

PATIENT
  Age: 49 Year
  Sex: Male

DRUGS (5)
  1. KALETRA [Suspect]
     Indication: HIV INFECTION
     Dosage: 500/100MG TWICE DAILY-1000/200MG DAILY
     Route: 048
     Dates: start: 20061001, end: 20091201
  2. ALUVIA [Suspect]
     Indication: HIV INFECTION
     Dosage: 400/100 MG TWICE DAILY-800/200MG DAILY
     Route: 048
     Dates: start: 20090101, end: 20091201
  3. ZIDOVUDINE [Concomitant]
     Indication: HIV INFECTION
     Route: 048
     Dates: start: 20061001
  4. LAMIVUDINE [Concomitant]
     Indication: HIV INFECTION
     Route: 048
     Dates: start: 20061001
  5. TRIMETHOPRIM + SULFAMETHOXAZOLE [Concomitant]
     Indication: HIV INFECTION
     Route: 048
     Dates: start: 20061001

REACTIONS (2)
  - CEREBROVASCULAR ACCIDENT [None]
  - HYPERTRIGLYCERIDAEMIA [None]
